FAERS Safety Report 9837115 (Version 1)
Quarter: 2013Q4

REPORT INFORMATION
  Report Type: Spontaneous
  Country: US (occurrence: None)
  Receive Date: 20131205
  Receipt Date: 20131205
  Transmission Date: 20140711
  Serious: Yes (Hospitalization)
  Sender: FDA-Public Use
  Company Number: 163-POMAL-13083483

PATIENT
  Age: 72 Year
  Sex: Male
  Weight: 108.4 kg

DRUGS (11)
  1. POMALYST (POMALIDOMIDE) (CAPSULES) [Suspect]
     Indication: PLASMA CELL MYELOMA
     Dosage: 4 MG, 1 IN 1 D, PO
     Route: 048
     Dates: start: 201305
  2. FUROSEMIDE (FUROSEMIDE) [Concomitant]
  3. ASPIRIN (ACETYLSALICYLIC ACID) [Concomitant]
  4. CALCIUM CITRATE+D (CALCIUM CITRATE W/COLECALCIFEROL) [Concomitant]
  5. TRAVATAN (TRAVOPROST) [Concomitant]
  6. VITAMIN D (ERGOCALCIFEROL) [Concomitant]
  7. MICARDIS (TELMISARTAN) [Concomitant]
  8. NOVOLIN (INSULIN HUMAN INJECTION, ISOPHANE) [Concomitant]
  9. CARVEDILOL (CARVEDILOL) [Concomitant]
  10. HYDRALAZINE HYDROCHLORIDE [Concomitant]
  11. CLONIDINE HCL (CLONIDINE HYDROCHLORIDE) [Concomitant]

REACTIONS (1)
  - White blood cell count decreased [None]
